FAERS Safety Report 11198819 (Version 1)
Quarter: 2015Q2

REPORT INFORMATION
  Report Type: Spontaneous
  Country: US (occurrence: None)
  Receive Date: 20150608
  Receipt Date: 20150608
  Transmission Date: 20150821
  Serious: No
  Sender: FDA-Public Use
  Company Number: 2015TUS003476

PATIENT
  Age: 58 Year
  Sex: Female
  Weight: 61.2 kg

DRUGS (4)
  1. LEVOTHYROXINE [Concomitant]
     Active Substance: LEVOTHYROXINE
  2. BRINTELLIX [Suspect]
     Active Substance: VORTIOXETINE HYDROBROMIDE
     Indication: DEPRESSION
     Route: 048
     Dates: start: 20150303
  3. OTC ^LIQUID^ (ALL OTHER THERAPEUTIC PRODUCTS) [Concomitant]
  4. IMODIUM [Concomitant]
     Active Substance: LOPERAMIDE HYDROCHLORIDE

REACTIONS (5)
  - Nausea [None]
  - Diarrhoea [None]
  - Vomiting [None]
  - Acne [None]
  - Abdominal pain upper [None]

NARRATIVE: CASE EVENT DATE: 20150303
